FAERS Safety Report 9772592 (Version 2)
Quarter: 2013Q4

REPORT INFORMATION
  Report Type: Report from Study
  Country: US (occurrence: US)
  Receive Date: 20131219
  Receipt Date: 20131219
  Transmission Date: 20140711
  Serious: Yes (Other)
  Sender: FDA-Public Use
  Company Number: US-JNJFOC-20131010990

PATIENT
  Age: 26 Year
  Sex: Female

DRUGS (4)
  1. REMICADE [Suspect]
     Indication: PRODUCT USED FOR UNKNOWN INDICATION
     Route: 042
     Dates: start: 201302, end: 201305
  2. PREDNISONE [Concomitant]
     Indication: COLITIS ULCERATIVE
     Route: 065
  3. LOW OGESTREL [Concomitant]
     Indication: CONTRACEPTION
     Route: 065
  4. BENADRYL [Concomitant]
     Route: 065

REACTIONS (2)
  - Anaphylactic shock [Recovered/Resolved]
  - Lupus-like syndrome [Recovered/Resolved]
